FAERS Safety Report 9185588 (Version 2)
Quarter: 2013Q4

REPORT INFORMATION
  Report Type: Spontaneous
  Country: US (occurrence: US)
  Receive Date: 20130325
  Receipt Date: 20131205
  Transmission Date: 20140711
  Serious: No
  Sender: FDA-Public Use
  Company Number: US-ASTRAZENECA-2012SE81475

PATIENT
  Age: 46 Year
  Sex: Female

DRUGS (12)
  1. NEXIUM [Suspect]
     Indication: GASTROOESOPHAGEAL REFLUX DISEASE
     Route: 048
     Dates: start: 2012
  2. NEXIUM [Suspect]
     Indication: GASTROOESOPHAGEAL REFLUX DISEASE
     Route: 048
  3. PRILOSEC [Suspect]
     Indication: GASTROOESOPHAGEAL REFLUX DISEASE
     Dosage: DAILY
     Route: 048
  4. ANTIDEPRASSANT [Suspect]
     Route: 065
  5. ABILIFY [Concomitant]
     Indication: ANTIDEPRESSANT THERAPY
     Route: 048
  6. OPANA ER [Concomitant]
     Indication: PAIN
     Route: 048
  7. CYMBALTA [Concomitant]
     Indication: ANTIDEPRESSANT THERAPY
     Route: 048
  8. OXYBUTIN [Concomitant]
     Indication: BLADDER DISORDER
     Route: 048
  9. CLONAZEPAM [Concomitant]
     Indication: ANXIETY
     Route: 048
  10. COMBIGAN [Concomitant]
     Indication: EYE DISORDER
  11. TRAVATAN [Concomitant]
     Indication: EYE DISORDER
  12. PREVACID [Concomitant]

REACTIONS (5)
  - Chest pain [Unknown]
  - Throat irritation [Recovered/Resolved]
  - Weight increased [Unknown]
  - Intentional drug misuse [Unknown]
  - Drug ineffective [Unknown]
